FAERS Safety Report 4685776-0 (Version None)
Quarter: 2005Q2

REPORT INFORMATION
  Report Type: 
  Country: None (occurrence: None)
  Receive Date: 20050607
  Receipt Date: 20050607
  Transmission Date: 20051028
  Serious: Yes (Death)
  Sender: FDA-Public Use
  Company Number: None

PATIENT
  Age: 36 Year
  Sex: Female

DRUGS (1)
  1. GEMZAR [Suspect]

REACTIONS (4)
  - DYSPNOEA [None]
  - HYPOXIA [None]
  - PLEURAL EFFUSION [None]
  - SEPSIS [None]
